FAERS Safety Report 12287568 (Version 1)
Quarter: 2016Q2

REPORT INFORMATION
  Report Type: Spontaneous
  Country: US (occurrence: US)
  Receive Date: 20160420
  Receipt Date: 20160420
  Transmission Date: 20160815
  Serious: No
  Sender: FDA-Public Use
  Company Number: US-TAKEDA-2016TUS006763

PATIENT
  Sex: Male

DRUGS (1)
  1. COLCRYS [Suspect]
     Active Substance: COLCHICINE
     Indication: ARTERIAL OCCLUSIVE DISEASE
     Dosage: 0.6 MG, UNK
     Route: 048

REACTIONS (2)
  - No adverse event [Unknown]
  - Drug prescribing error [Unknown]
